FAERS Safety Report 21376760 (Version 1)
Quarter: 2022Q3

REPORT INFORMATION
  Report Type: Report from Study
  Country: BR (occurrence: BR)
  Receive Date: 20220926
  Receipt Date: 20220926
  Transmission Date: 20221027
  Serious: Yes (Other)
  Sender: FDA-Public Use
  Company Number: BR-BoehringerIngelheim-2022-BI-193028

PATIENT
  Age: 61 Year
  Sex: Female
  Weight: 65 kg

DRUGS (8)
  1. OLODATEROL HYDROCHLORIDE\TIOTROPIUM BROMIDE MONOHYDRATE [Suspect]
     Active Substance: OLODATEROL HYDROCHLORIDE\TIOTROPIUM BROMIDE MONOHYDRATE
     Indication: Total lung capacity decreased
     Dosage: 2.5MCG+2.5MCG, AEROSOL, USES IT ONCE A DAY AT 7 AM, ASPIRATING 2 PUFFS
     Route: 055
     Dates: start: 202208
  2. ATROVENT [Suspect]
     Active Substance: IPRATROPIUM BROMIDE
     Indication: Product used for unknown indication
     Dosage: 0.25MG, 2 OR 3 DROPS INHALATIONS PER DAY, 15 DROPS
     Route: 055
     Dates: start: 2007, end: 20220908
  3. BEROTEC [Suspect]
     Active Substance: FENOTEROL HYDROBROMIDE
     Indication: Product used for unknown indication
     Dosage: MAKING 2 OR 3 INHALATIONS A DAY OR WITHOUT CRISIS SITUATIONS EVERY 3 HOURS OR EVERY 4 HOURS, 15 DROP
     Route: 055
     Dates: start: 2007, end: 2021
  4. LOSARTAN [Concomitant]
     Active Substance: LOSARTAN
     Indication: Hypertension
     Dosage: IN THE MORNING
     Route: 048
  5. Sinvastantina [Concomitant]
     Indication: Blood cholesterol abnormal
     Dosage: 1 TABLET OF 20 MG AT NIGHT
     Route: 048
     Dates: start: 2019
  6. Clonazempam [Concomitant]
     Indication: Anxiety
     Dosage: 2.5ML, 2 DROPS IN THE MORNING AND 2 AT NIGHT
     Route: 048
     Dates: start: 2020
  7. Sabutamol [Concomitant]
     Indication: Dyspnoea
     Dosage: 100MG/100MPG, 2 PUFFS 2 TIMES A DAY
     Route: 055
     Dates: start: 2019, end: 20220905
  8. Alenia [Concomitant]
     Indication: Dyspnoea
     Dosage: 1 TABLET OF 200/400MG IN THE MORNING AND 1 TABLET AT NIGHT
     Route: 048

REACTIONS (7)
  - Retinal detachment [Unknown]
  - COVID-19 [Recovered/Resolved]
  - Eyelid ptosis [Not Recovered/Not Resolved]
  - Erythema [Recovered/Resolved]
  - Burning sensation [Recovered/Resolved]
  - Skin exfoliation [Not Recovered/Not Resolved]
  - Cataract [Not Recovered/Not Resolved]

NARRATIVE: CASE EVENT DATE: 20220829
